FAERS Safety Report 14092934 (Version 2)
Quarter: 2017Q4

REPORT INFORMATION
  Report Type: Spontaneous
  Country: SK (occurrence: SK)
  Receive Date: 20171016
  Receipt Date: 20171020
  Transmission Date: 20180321
  Serious: Yes (Other)
  Sender: FDA-Public Use
  Company Number: SK-PFIZER INC-2017440287

PATIENT
  Age: 25 Year
  Sex: Female

DRUGS (2)
  1. METHYLPREDNISOLONE. [Suspect]
     Active Substance: METHYLPREDNISOLONE
     Indication: ENCEPHALITIS AUTOIMMUNE
     Dosage: TOTAL DOSE 3 G
  2. METHYLPREDNISOLONE. [Suspect]
     Active Substance: METHYLPREDNISOLONE
     Dosage: TOTAL DOSE 5 G

REACTIONS (6)
  - Epilepsy [Unknown]
  - Paresis [Unknown]
  - Tremor [Unknown]
  - Speech disorder [Unknown]
  - Drug ineffective [Unknown]
  - Muscle rigidity [Unknown]
